FAERS Safety Report 14370477 (Version 2)
Quarter: 2018Q1

REPORT INFORMATION
  Report Type: Spontaneous
  Country: US (occurrence: US)
  Receive Date: 20180110
  Receipt Date: 20180131
  Transmission Date: 20180509
  Serious: No
  Sender: FDA-Public Use
  Company Number: US-PFIZER INC-2018005368

PATIENT
  Age: 66 Year
  Sex: Female

DRUGS (1)
  1. LYRICA [Suspect]
     Active Substance: PREGABALIN
     Indication: NEURALGIA
     Dosage: 150 MG, 3X/DAY(THREE TIMES A DAY)
     Dates: start: 201107

REACTIONS (3)
  - Ear pain [Unknown]
  - Oropharyngeal pain [Recovered/Resolved]
  - Influenza [Unknown]
